FAERS Safety Report 20545857 (Version 1)
Quarter: 2022Q1

REPORT INFORMATION
  Report Type: Spontaneous
  Country: US (occurrence: None)
  Receive Date: 20220302
  Receipt Date: 20220302
  Transmission Date: 20220423
  Serious: Yes (Hospitalization)
  Sender: FDA-Public Use
  Company Number: None

PATIENT
  Age: 52 Year
  Sex: Female

DRUGS (9)
  1. SIMPONI [Suspect]
     Active Substance: GOLIMUMAB
     Indication: Ankylosing spondylitis
     Route: 058
     Dates: start: 201804
  2. BACLOFEN [Concomitant]
  3. CHANTIX PAK [Concomitant]
  4. KETOROLAC SOL [Concomitant]
  5. METOPROL SUC TAB [Concomitant]
  6. MIRTAZAPINE TAB [Concomitant]
  7. MORPHINE SUL TAB [Concomitant]
  8. SIMPONI INJ [Concomitant]
  9. VENTOLIN HFA [Concomitant]

REACTIONS (1)
  - Therapy interrupted [None]

NARRATIVE: CASE EVENT DATE: 20220302
